FAERS Safety Report 12596307 (Version 1)
Quarter: 2016Q3

REPORT INFORMATION
  Report Type: Report from Study
  Country: US (occurrence: US)
  Receive Date: 20160726
  Receipt Date: 20160726
  Transmission Date: 20161109
  Serious: No
  Sender: FDA-Public Use
  Company Number: US-AMGEN-USASL2016076540

PATIENT
  Age: 78 Year
  Sex: Male
  Weight: 78.5 kg

DRUGS (1)
  1. KYPROLIS [Suspect]
     Active Substance: CARFILZOMIB
     Indication: PLASMA CELL MYELOMA
     Dosage: 48 MG, DAY 1,2,8,9,15,16 FOR 28 DAYS
     Route: 042
     Dates: start: 20160210, end: 20160519

REACTIONS (3)
  - Neuropathy peripheral [Not Recovered/Not Resolved]
  - Biopsy bone marrow [Unknown]
  - Disease progression [Unknown]

NARRATIVE: CASE EVENT DATE: 2016
